FAERS Safety Report 6128914-5 (Version None)
Quarter: 2009Q1

REPORT INFORMATION
  Report Type: 
  Country: None (occurrence: None)
  Receive Date: 20090324
  Receipt Date: 20090312
  Transmission Date: 20090719
  Serious: Yes (Life-Threatening)
  Sender: FDA-Public Use
  Company Number: GB-BAXTER-2009BH003907

PATIENT
  Age: 84 Year
  Sex: Female
  Weight: 60 kg

DRUGS (6)
  1. METRONIDAZOLE [Suspect]
     Indication: CHOLECYSTITIS
     Route: 042
     Dates: start: 20090127, end: 20090130
  2. AMOXICILLIN AND CLAVULANATE POTASSIUM [Suspect]
     Indication: CHOLECYSTITIS
     Route: 042
     Dates: start: 20090127, end: 20090130
  3. ATORVASTATIN [Concomitant]
     Indication: DYSLIPIDAEMIA
     Route: 048
     Dates: start: 20090127, end: 20090130
  4. DOMPERIDONE [Concomitant]
     Indication: NAUSEA
     Route: 048
     Dates: start: 20090127
  5. PERINDOPRIL ERBUMINE [Concomitant]
     Indication: MYOCARDIAL ISCHAEMIA
     Route: 048
     Dates: start: 20090127
  6. QUININE SULPHATE [Concomitant]
     Indication: MUSCLE SPASMS
     Route: 048
     Dates: end: 20090130

REACTIONS (4)
  - COMA [None]
  - CONFUSIONAL STATE [None]
  - DIPLOPIA [None]
  - HYPOGLYCAEMIA [None]
